FAERS Safety Report 7522378-2 (Version None)
Quarter: 2011Q2

REPORT INFORMATION
  Report Type: 
  Country: None (occurrence: None)
  Receive Date: 20110603
  Receipt Date: 20110520
  Transmission Date: 20111010
  Serious: Yes (Other)
  Sender: FDA-Public Use
  Company Number: US-ELI_LILLY_AND_COMPANY-US201105006469

PATIENT
  Sex: Female

DRUGS (6)
  1. LYRICA [Concomitant]
  2. MILNACIPRAN [Concomitant]
  3. CYMBALTA [Suspect]
     Dosage: UNK
  4. NEURONTIN [Concomitant]
  5. METHOCARBAMOL [Concomitant]
  6. TRAMADOL HYDROCHLORIDE [Concomitant]

REACTIONS (5)
  - DRUG WITHDRAWAL SYNDROME [None]
  - DRUG DEPENDENCE [None]
  - VOMITING [None]
  - SOMNOLENCE [None]
  - ADVERSE EVENT [None]
